FAERS Safety Report 10744776 (Version 1)
Quarter: 2015Q1

REPORT INFORMATION
  Report Type: Spontaneous
  Country: NO (occurrence: NO)
  Receive Date: 20150128
  Receipt Date: 20150128
  Transmission Date: 20150721
  Serious: Yes (Hospitalization)
  Sender: FDA-Public Use
  Company Number: NO-ASTRAZENECA-2015SE06000

PATIENT
  Age: 34 Year
  Sex: Female

DRUGS (6)
  1. SOLIAN [Suspect]
     Active Substance: AMISULPRIDE
     Indication: SCHIZOAFFECTIVE DISORDER
     Route: 048
     Dates: end: 201405
  2. ABILIFY [Suspect]
     Active Substance: ARIPIPRAZOLE
     Route: 065
     Dates: start: 201408, end: 20141201
  3. ZOLOFT [Concomitant]
     Active Substance: SERTRALINE HYDROCHLORIDE
     Route: 065
  4. SOLIAN [Suspect]
     Active Substance: AMISULPRIDE
     Indication: SCHIZOAFFECTIVE DISORDER
     Dosage: 300-400 MG, DAILY
     Route: 048
     Dates: start: 201405, end: 20141201
  5. QUETIAPINE FUMARATE. [Suspect]
     Active Substance: QUETIAPINE FUMARATE
     Route: 048
     Dates: start: 20141201
  6. LITHIONIT [Concomitant]
     Active Substance: LITHIUM SULFATE
     Route: 065

REACTIONS (5)
  - Tremor [Recovering/Resolving]
  - Tardive dyskinesia [Recovering/Resolving]
  - Muscle tightness [Recovering/Resolving]
  - Extrapyramidal disorder [Recovering/Resolving]
  - Dystonia [Recovering/Resolving]

NARRATIVE: CASE EVENT DATE: 2014
